FAERS Safety Report 15592744 (Version 1)
Quarter: 2018Q4

REPORT INFORMATION
  Report Type: Spontaneous
  Country: SE (occurrence: SE)
  Receive Date: 20181107
  Receipt Date: 20181107
  Transmission Date: 20190205
  Serious: Yes (Other)
  Sender: FDA-Public Use
  Company Number: SE-TEVA-2018-SE-971819

PATIENT
  Sex: Male
  Weight: 90 kg

DRUGS (1)
  1. DICLOFENAC [Suspect]
     Active Substance: DICLOFENAC
     Indication: ROTATOR CUFF SYNDROME
     Dosage: DOSERING: 2 PER DYGN.
     Route: 065
     Dates: start: 2013, end: 2016

REACTIONS (3)
  - Irritability [Recovered/Resolved]
  - Anger [Recovered/Resolved]
  - Personality change [Recovered/Resolved]
